FAERS Safety Report 8190622-7 (Version None)
Quarter: 2012Q1

REPORT INFORMATION
  Report Type: 
  Country: None (occurrence: None)
  Receive Date: 20120307
  Receipt Date: 20120302
  Transmission Date: 20120608
  Serious: Yes (Life-Threatening, Other)
  Sender: FDA-Public Use
  Company Number: US-ROCHE-1041184

PATIENT
  Sex: Female
  Weight: 74.91 kg

DRUGS (6)
  1. ULTRAM [Concomitant]
     Indication: PAIN
     Dosage: AS REQUIRED
     Route: 048
  2. CLARITIN [Concomitant]
     Indication: HYPERSENSITIVITY
     Route: 048
  3. XANAX [Concomitant]
     Indication: ANXIETY
     Route: 048
  4. ACTEMRA [Suspect]
     Indication: RHEUMATOID ARTHRITIS
     Route: 042
     Dates: start: 20110920, end: 20120209
  5. ABILIFY [Concomitant]
     Route: 048
  6. SYNTHROID [Concomitant]
     Indication: THYROID DISORDER
     Route: 048

REACTIONS (4)
  - CHEST PAIN [None]
  - ABDOMINAL PAIN [None]
  - RASH PRURITIC [None]
  - PALPITATIONS [None]
